FAERS Safety Report 8442676-8 (Version None)
Quarter: 2012Q2

REPORT INFORMATION
  Report Type: 
  Country: None (occurrence: None)
  Receive Date: 20120615
  Receipt Date: 20111201
  Transmission Date: 20120825
  Serious: No
  Sender: FDA-Public Use
  Company Number: US-NOVEN-11US003720

PATIENT
  Sex: Male

DRUGS (2)
  1. DAYTRANA [Suspect]
     Indication: PRODUCT USED FOR UNKNOWN INDICATION
     Dosage: UNK
     Route: 062
     Dates: start: 20100101, end: 20100101
  2. DAYTRANA [Suspect]
     Dosage: 1 PATCH DAILY
     Dates: start: 20110101

REACTIONS (4)
  - INSOMNIA [None]
  - DEPRESSED MOOD [None]
  - APPLICATION SITE ERYTHEMA [None]
  - DECREASED APPETITE [None]
